FAERS Safety Report 23845820 (Version 3)
Quarter: 2024Q3

REPORT INFORMATION
  Report Type: Spontaneous
  Country: US (occurrence: US)
  Receive Date: 20240512
  Receipt Date: 20240702
  Transmission Date: 20241016
  Serious: No
  Sender: SANOFI AVENTIS
  Company Number: US-SA-SAC20240503000937

PATIENT
  Age: 2 Year
  Sex: Female
  Weight: 11.8 kg

DRUGS (13)
  1. DUPIXENT [Suspect]
     Active Substance: DUPILUMAB
     Indication: Dermatitis atopic
     Dosage: 200 MG, QM
     Route: 058
     Dates: start: 202403
  2. VITAMINS NOS [Concomitant]
     Active Substance: VITAMINS
  3. VITAMINS NOS [Concomitant]
     Active Substance: VITAMINS
  4. DESONIDE [Concomitant]
     Active Substance: DESONIDE
  5. DESONIDE [Concomitant]
     Active Substance: DESONIDE
  6. TACROLIMUS [Concomitant]
     Active Substance: TACROLIMUS
  7. TACROLIMUS [Concomitant]
     Active Substance: TACROLIMUS
  8. MOMETASONE FUROATE [Concomitant]
     Active Substance: MOMETASONE FUROATE
  9. MOMETASONE FUROATE [Concomitant]
     Active Substance: MOMETASONE FUROATE
  10. CHILDRENS ZYRTEC [Concomitant]
     Active Substance: CETIRIZINE HYDROCHLORIDE
  11. CHILDRENS ZYRTEC [Concomitant]
     Active Substance: CETIRIZINE HYDROCHLORIDE
  12. HYDROXYZINE HYDROCHLORIDE [Concomitant]
     Active Substance: HYDROXYZINE HYDROCHLORIDE
  13. HYDROXYZINE HYDROCHLORIDE [Concomitant]
     Active Substance: HYDROXYZINE HYDROCHLORIDE

REACTIONS (9)
  - Cough [Unknown]
  - Nasal congestion [Unknown]
  - Rhinorrhoea [Unknown]
  - Dermatitis atopic [Recovering/Resolving]
  - Rash macular [Recovering/Resolving]
  - Dermatitis [Recovering/Resolving]
  - Dry skin [Recovering/Resolving]
  - Rash [Recovering/Resolving]
  - Skin warm [Recovering/Resolving]

NARRATIVE: CASE EVENT DATE: 20240422
